FAERS Safety Report 8613163-9 (Version None)
Quarter: 2012Q3

REPORT INFORMATION
  Report Type: 
  Country: None (occurrence: None)
  Receive Date: 20120822
  Receipt Date: 20120801
  Transmission Date: 20120928
  Serious: Yes (Hospitalization, Other)
  Sender: FDA-Public Use
  Company Number: US-009507513-1207USA004894

PATIENT

DRUGS (3)
  1. PEGINTERFERON ALFA-2B [Suspect]
     Indication: HEPATITIS C
     Dosage: UNK
     Dates: start: 20120604, end: 20120701
  2. TELAPREVIR [Suspect]
     Indication: HEPATITIS C
     Dosage: UNK
     Dates: start: 20120604, end: 20120701
  3. RIBAVIRIN [Suspect]
     Indication: HEPATITIS C
     Dosage: UNK
     Dates: start: 20120604, end: 20120701

REACTIONS (9)
  - NEPHROLITHIASIS [None]
  - TRANSFUSION [None]
  - DRUG DOSE OMISSION [None]
  - DEPRESSED MOOD [None]
  - PYREXIA [None]
  - VOMITING [None]
  - FATIGUE [None]
  - SEPSIS [None]
  - DIARRHOEA [None]
